FAERS Safety Report 11094660 (Version 4)
Quarter: 2015Q3

REPORT INFORMATION
  Report Type: Spontaneous
  Country: US (occurrence: US)
  Receive Date: 20150506
  Receipt Date: 20150909
  Transmission Date: 20151125
  Serious: Yes (Other)
  Sender: FDA-Public Use
  Company Number: US-UNITED THERAPEUTICS-UNT-2015-001846

PATIENT
  Age: 56 Year
  Sex: Male
  Weight: 83.9 kg

DRUGS (8)
  1. REVATIO [Concomitant]
     Active Substance: SILDENAFIL CITRATE
     Indication: PRODUCT USED FOR UNKNOWN INDICATION
  2. REMODULIN [Suspect]
     Active Substance: TREPROSTINIL
     Indication: PULMONARY ARTERIAL HYPERTENSION
     Dosage: 0.037 ?G/KG/MIN, CONTINUING
     Route: 058
     Dates: start: 20111130
  3. OXYCONTIN [Suspect]
     Active Substance: OXYCODONE HYDROCHLORIDE
     Indication: PAIN
  4. LETAIRIS [Suspect]
     Active Substance: AMBRISENTAN
     Indication: PRODUCT USED FOR UNKNOWN INDICATION
     Dosage: 10 MG, QD
     Dates: start: 20141003
  5. LETAIRIS [Suspect]
     Active Substance: AMBRISENTAN
     Dosage: 5 MG, QD
  6. REMODULIN [Suspect]
     Active Substance: TREPROSTINIL
     Dosage: 0.037 ?G/KG, CONTINUING
     Route: 058
     Dates: start: 20131126
  7. LETAIRIS [Suspect]
     Active Substance: AMBRISENTAN
     Dosage: 5 MG, QD
     Dates: start: 20141008
  8. REMODULIN [Suspect]
     Active Substance: TREPROSTINIL
     Dosage: UNK

REACTIONS (14)
  - Suicidal ideation [Unknown]
  - Nausea [Unknown]
  - Dyspnoea [Unknown]
  - Asthenia [Unknown]
  - Device dislocation [Unknown]
  - Seasonal allergy [Unknown]
  - Vomiting [Unknown]
  - Nasal congestion [Unknown]
  - Drug dose omission [Unknown]
  - Pain [Unknown]
  - Psychiatric symptom [Unknown]
  - Myalgia [Unknown]
  - Depressed mood [Unknown]
  - Infusion site pain [Unknown]

NARRATIVE: CASE EVENT DATE: 201502
